FAERS Safety Report 7276708-X (Version None)
Quarter: 2011Q1

REPORT INFORMATION
  Report Type: 
  Country: None (occurrence: None)
  Receive Date: 20110204
  Receipt Date: 20110131
  Transmission Date: 20110831
  Serious: Yes (Death)
  Sender: FDA-Public Use
  Company Number: SK-PFIZER INC-2011017085

PATIENT
  Age: 59 Year
  Sex: Male
  Weight: 110 kg

DRUGS (10)
  1. SOMATROPIN [Suspect]
     Indication: HYPOPITUITARISM
     Dosage: 0.5 MG, 1X/DAY
     Dates: start: 20091019
  2. HYDROCORTISONE [Concomitant]
     Indication: BLOOD CORTICOTROPHIN DECREASED
     Dosage: 30 MG, UNK
     Dates: start: 20070615
  3. UNDESTOR [Concomitant]
     Indication: HYPOGONADISM
     Dosage: 40 MG, 2X/DAY
     Route: 048
     Dates: start: 20070815
  4. UNDESTOR [Concomitant]
     Indication: BLOOD LUTEINISING HORMONE DECREASED
  5. SIOFOR [Concomitant]
     Indication: DIABETES MELLITUS
  6. DESMOPRESSIN [Concomitant]
     Indication: BLOOD ANTIDIURETIC HORMONE DECREASED
     Dosage: 120 UG, 1X/DAY
     Dates: start: 20070615
  7. UNDESTOR [Concomitant]
     Indication: BLOOD FOLLICLE STIMULATING HORMONE DECREASED
  8. EUTHYROX [Concomitant]
     Indication: PRIMARY HYPOTHYROIDISM
     Dosage: 125 UG, 1X/DAY
     Route: 048
     Dates: start: 20070615
  9. SITAGLIPTIN [Concomitant]
     Indication: DIABETES MELLITUS
     Dosage: 100 MG, 1X/DAY
     Route: 048
     Dates: start: 20081115
  10. EUTHYROX [Concomitant]
     Indication: BLOOD THYROID STIMULATING HORMONE DECREASED

REACTIONS (2)
  - CARDIAC FAILURE CHRONIC [None]
  - PULMONARY OEDEMA [None]
